FAERS Safety Report 5136512-5 (Version None)
Quarter: 2006Q4

REPORT INFORMATION
  Report Type: 
  Country: None (occurrence: None)
  Receive Date: 20061020
  Receipt Date: 20061006
  Transmission Date: 20070319
  Serious: Yes (Other)
  Sender: FDA-Public Use
  Company Number: 2006BH013894

PATIENT
  Age: 40 Year
  Sex: Female
  Weight: 45.5 kg

DRUGS (8)
  1. EXTRANEAL [Suspect]
     Indication: PERITONEAL DIALYSIS
     Dosage: 2 L; EVERY DAY; IP
     Route: 033
     Dates: start: 20060930, end: 20061006
  2. FOSEX [Concomitant]
  3. FERROUS SULFATE TAB [Concomitant]
  4. BEMIKS [Concomitant]
  5. LACTULOSE [Concomitant]
  6. LASIX [Concomitant]
  7. EPOETIN BETA [Concomitant]
  8. KETOSTERIL [Concomitant]

REACTIONS (4)
  - ABDOMINAL PAIN [None]
  - PYREXIA [None]
  - UNEVALUABLE EVENT [None]
  - WHITE BLOOD CELL COUNT DECREASED [None]
